FAERS Safety Report 17957307 (Version 4)
Quarter: 2020Q3

REPORT INFORMATION
  Report Type: Spontaneous
  Country: US (occurrence: US)
  Receive Date: 20200629
  Receipt Date: 20200930
  Transmission Date: 20201103
  Serious: Yes (Other)
  Sender: FDA-Public Use
  Company Number: US-PFIZER INC-2018193442

PATIENT
  Age: 62 Year
  Sex: Female

DRUGS (3)
  1. LOSARTAN. [Concomitant]
     Active Substance: LOSARTAN
     Dosage: UNK
  2. XELJANZ XR [Suspect]
     Active Substance: TOFACITINIB CITRATE
     Indication: PSORIATIC ARTHROPATHY
     Dosage: 11 MG, 1X/DAY
     Route: 048
     Dates: start: 201910
  3. GABAPENTIN. [Concomitant]
     Active Substance: GABAPENTIN
     Dosage: UNK

REACTIONS (10)
  - Depressed mood [Unknown]
  - Pain [Unknown]
  - Frustration tolerance decreased [Recovering/Resolving]
  - Memory impairment [Unknown]
  - Rheumatoid arthritis [Unknown]
  - Product dose omission in error [Unknown]
  - Feeling abnormal [Unknown]
  - Malaise [Unknown]
  - Sinusitis [Unknown]
  - Nasopharyngitis [Unknown]
